FAERS Safety Report 4320435-5 (Version None)
Quarter: 2004Q1

REPORT INFORMATION
  Report Type: 
  Country: None (occurrence: None)
  Receive Date: 20040317
  Receipt Date: 20040308
  Transmission Date: 20041129
  Serious: Yes (Other)
  Sender: FDA-Public Use
  Company Number: 2004003159

PATIENT
  Age: 66 Year
  Sex: Female
  Weight: 72.5755 kg

DRUGS (12)
  1. LIPITOR [Suspect]
     Indication: BLOOD CHOLESTEROL
     Dosage: 10 MG (DAILY), ORAL
     Route: 048
  2. PIROXICAM [Concomitant]
  3. LANSOPRAZOLE [Concomitant]
  4. CYCLOBENZAPRINE HYDROCHLORIDE [Concomitant]
  5. AMITRIPTYLINE HYDROCHLORIDE [Concomitant]
  6. METHYLSULFONYLMETHANE (METHYLSULFONYLMETHANE) [Concomitant]
  7. CIMICIFUGA RACEMOSA ROOT (CIMICIFUGA RACEMOSA ROOT) [Concomitant]
  8. ALL OTHER THERAPEUTIC PRODUCTS [Concomitant]
  9. EVENING PRIMROSE OIL (EVENING PRIMROSE OIL) [Concomitant]
  10. TOCOPHEROL CONCENTRATE CAP [Concomitant]
  11. ACETYLSALICYLIC ACID SRT [Concomitant]
  12. ESTROGENIC SUBSTANCE [Concomitant]

REACTIONS (6)
  - ASTHENIA [None]
  - CALCINOSIS [None]
  - HYPOAESTHESIA [None]
  - PAIN IN EXTREMITY [None]
  - PARAESTHESIA [None]
  - TRIGGER FINGER [None]
